FAERS Safety Report 4819891-5 (Version None)
Quarter: 2005Q4

REPORT INFORMATION
  Report Type: 
  Country: None (occurrence: None)
  Receive Date: 20051103
  Receipt Date: 20050413
  Transmission Date: 20060501
  Serious: Yes (Hospitalization)
  Sender: FDA-Public Use
  Company Number: US-MERCK-0504USA02016

PATIENT
  Age: 59 Year
  Sex: Female
  Weight: 68 kg

DRUGS (9)
  1. VIOXX [Suspect]
     Route: 048
     Dates: start: 20010401, end: 20040701
  2. COREG [Concomitant]
     Route: 048
  3. MONOPRIL [Concomitant]
     Route: 048
  4. PLAVIX [Concomitant]
     Route: 048
  5. LASIX [Concomitant]
     Route: 048
  6. NITROGLYCERIN [Concomitant]
     Route: 065
  7. LORATADINE [Concomitant]
     Route: 048
  8. ASPIRIN [Concomitant]
     Route: 048
  9. TYLENOL (CAPLET) [Concomitant]
     Route: 048

REACTIONS (13)
  - BREAST CANCER STAGE II [None]
  - CARDIAC DISORDER [None]
  - CARDIAC FAILURE [None]
  - CARDIAC FAILURE CONGESTIVE [None]
  - DIABETES MELLITUS [None]
  - DYSLIPIDAEMIA [None]
  - DYSPNOEA [None]
  - EJECTION FRACTION DECREASED [None]
  - LOBAR PNEUMONIA [None]
  - POLYTRAUMATISM [None]
  - PULMONARY OEDEMA [None]
  - RENAL FAILURE CHRONIC [None]
  - RESPIRATORY FAILURE [None]
